FAERS Safety Report 7342577-2 (Version None)
Quarter: 2011Q1

REPORT INFORMATION
  Report Type: 
  Country: None (occurrence: None)
  Receive Date: 20110310
  Receipt Date: 20110217
  Transmission Date: 20110831
  Serious: Yes (Hospitalization, Other)
  Sender: FDA-Public Use
  Company Number: US-BAYER-201033322NA

PATIENT
  Sex: Female
  Weight: 91 kg

DRUGS (10)
  1. ALLEGRA [Concomitant]
  2. OCELLA [Suspect]
     Route: 048
     Dates: start: 20070101, end: 20080819
  3. IBUPROFEN [Concomitant]
  4. FLEXERIL [Concomitant]
  5. UNKNOWN [Concomitant]
  6. NAPROXEN [Concomitant]
  7. YASMIN [Suspect]
     Route: 048
     Dates: start: 20070101, end: 20080819
  8. MULTI-VITAMINS [Concomitant]
  9. YAZ [Suspect]
     Indication: PERIODONTAL DISEASE
     Route: 048
     Dates: start: 20070101, end: 20080819
  10. ZEGERID [Concomitant]

REACTIONS (6)
  - GALLBLADDER INJURY [None]
  - CHOLECYSTITIS [None]
  - PAIN [None]
  - SCAR [None]
  - CHOLELITHIASIS [None]
  - EMOTIONAL DISTRESS [None]
